FAERS Safety Report 5197817-5 (Version None)
Quarter: 2006Q4

REPORT INFORMATION
  Report Type: 
  Country: None (occurrence: None)
  Receive Date: 20061228
  Receipt Date: 20061213
  Transmission Date: 20070319
  Serious: Yes (Hospitalization, Other)
  Sender: FDA-Public Use
  Company Number: 2006BI018419

PATIENT
  Age: 29 Year
  Sex: Female

DRUGS (2)
  1. AVONEX [Suspect]
     Indication: MULTIPLE SCLEROSIS
     Dosage: 30 UG; QW; IM
     Route: 030
     Dates: start: 20000901, end: 20030801
  2. AVONEX [Suspect]
     Dosage: 30 UG; QW; IM
     Route: 030
     Dates: start: 20030801

REACTIONS (7)
  - HALLUCINATION, AUDITORY [None]
  - SUICIDE ATTEMPT [None]
  - UTERINE HAEMORRHAGE [None]
  - UTERINE INJURY [None]
  - UTERINE MALPOSITION [None]
  - UTERINE PAIN [None]
  - UTERINE POLYP [None]
